FAERS Safety Report 10074525 (Version 1)
Quarter: 2014Q2

REPORT INFORMATION
  Report Type: Spontaneous
  Country: US (occurrence: US)
  Receive Date: 20140411
  Receipt Date: 20140411
  Transmission Date: 20141212
  Serious: No
  Sender: FDA-Public Use
  Company Number: US-SA-2013SA125648

PATIENT
  Age: 63 Year
  Sex: Female
  Weight: 50.34 kg

DRUGS (1)
  1. ALLEGRA D [Suspect]
     Indication: HYPERSENSITIVITY
     Route: 048

REACTIONS (1)
  - Dry throat [Unknown]
